FAERS Safety Report 15377273 (Version 7)
Quarter: 2023Q2

REPORT INFORMATION
  Report Type: Spontaneous
  Country: US (occurrence: US)
  Receive Date: 20180913
  Receipt Date: 20230523
  Transmission Date: 20230721
  Serious: Yes (Other)
  Sender: FDA-Public Use
  Company Number: US-PFIZER INC-2018365258

PATIENT
  Age: 37 Year
  Sex: Male

DRUGS (7)
  1. SOMAVERT [Suspect]
     Active Substance: PEGVISOMANT
     Dosage: 10 MG, DAILY (7X A WEEK)
  2. SOMAVERT [Suspect]
     Active Substance: PEGVISOMANT
     Dosage: 10 MG, 1X/DAY (UNDER THE SKIN)
  3. SOMAVERT [Suspect]
     Active Substance: PEGVISOMANT
     Dosage: 20 MG, DAILY
     Route: 058
  4. POTASSIUM [Concomitant]
     Active Substance: POTASSIUM
     Dosage: UNK (595(99)MG)
  5. TESTOSTERONE [Concomitant]
     Active Substance: TESTOSTERONE
     Dosage: UNK (1.25G-1.62 GEL PACKET)
  6. D 400 [Concomitant]
     Dosage: 100 UG
  7. VITAMIN D2 [Concomitant]
     Active Substance: ERGOCALCIFEROL
     Dosage: UNK

REACTIONS (6)
  - Nephrolithiasis [Unknown]
  - Insulin-like growth factor increased [Not Recovered/Not Resolved]
  - Malaise [Recovering/Resolving]
  - Migraine [Recovering/Resolving]
  - Feeling abnormal [Recovering/Resolving]
  - Product dose omission issue [Unknown]

NARRATIVE: CASE EVENT DATE: 20180904
